FAERS Safety Report 9204339 (Version 2)
Quarter: 2013Q2

REPORT INFORMATION
  Report Type: Report from Study
  Country: PL (occurrence: PL)
  Receive Date: 20130402
  Receipt Date: 20130521
  Transmission Date: 20140414
  Serious: Yes (Hospitalization)
  Sender: FDA-Public Use
  Company Number: PL-ROCHE-1208925

PATIENT
  Age: 53 Year
  Sex: Female
  Weight: 59 kg

DRUGS (6)
  1. TELAPREVIR [Suspect]
     Indication: HEPATITIS C
     Route: 048
     Dates: start: 20120917, end: 20121209
  2. RIBAVIRIN [Suspect]
     Indication: HEPATITIS C
     Route: 048
     Dates: start: 20120917, end: 20130103
  3. PEG-INTERFERON ALFA 2A [Suspect]
     Indication: HEPATITIS C
     Route: 058
     Dates: start: 20120917, end: 20130225
  4. VX-222 [Suspect]
     Indication: HEPATITIS C
     Route: 048
     Dates: start: 20120917, end: 20121209
  5. VALSARTAN [Concomitant]
     Route: 065
     Dates: start: 2010
  6. HYDROCHLOROTHIAZIDE [Concomitant]
     Route: 065
     Dates: start: 2010

REACTIONS (1)
  - Anal fistula [Recovered/Resolved]
